FAERS Safety Report 12048779 (Version 1)
Quarter: 2016Q1

REPORT INFORMATION
  Report Type: Spontaneous
  Country: US (occurrence: None)
  Receive Date: 20160208
  Receipt Date: 20160208
  Transmission Date: 20160526
  Serious: No
  Sender: FDA-Public Use
  Company Number: None

PATIENT
  Age: 68 Year
  Sex: Female
  Weight: 63.5 kg

DRUGS (7)
  1. PREDNISONE. [Concomitant]
     Active Substance: PREDNISONE
  2. CENTRUM THERMADOL (CALCIUM TABS) [Concomitant]
  3. FAMOTINE [Concomitant]
     Active Substance: FAMOTINE
  4. GRALISE [Suspect]
     Active Substance: GABAPENTIN
     Indication: SPINAL COLUMN STENOSIS
     Dosage: GRADUALLY 1-2 PILLS ONCE DAILY TAKEN BY MOUTH
     Route: 048
     Dates: start: 20160125, end: 20160131
  5. IRON [Concomitant]
     Active Substance: IRON
  6. SIMVASTATIN. [Concomitant]
     Active Substance: SIMVASTATIN
  7. DIOVAN [Concomitant]
     Active Substance: VALSARTAN

REACTIONS (2)
  - Tremor [None]
  - Grip strength decreased [None]

NARRATIVE: CASE EVENT DATE: 20160125
